FAERS Safety Report 5526792-6 (Version None)
Quarter: 2007Q4

REPORT INFORMATION
  Report Type: 
  Country: None (occurrence: None)
  Receive Date: 20071127
  Receipt Date: 20071116
  Transmission Date: 20080405
  Serious: Yes (Congenital Anomaly)
  Sender: FDA-Public Use
  Company Number: US-ROCHE-523479

PATIENT
  Sex: Female
  Weight: 3.9 kg

DRUGS (2)
  1. ACCUTANE [Suspect]
     Indication: DRUG USE FOR UNKNOWN INDICATION
     Dosage: FIRST COURSE
     Dates: end: 20000101
  2. ACCUTANE [Suspect]
     Dosage: SECOND COURSE
     Dates: end: 20030501

REACTIONS (8)
  - C-REACTIVE PROTEIN INCREASED [None]
  - CHORIORETINOPATHY [None]
  - CLEFT LIP AND PALATE [None]
  - CONGENITAL ANOMALY [None]
  - CONGENITAL CENTRAL NERVOUS SYSTEM ANOMALY [None]
  - CONGENITAL HYDROCEPHALUS [None]
  - ULTRASOUND KIDNEY ABNORMAL [None]
  - WHITE BLOOD CELL COUNT INCREASED [None]
